FAERS Safety Report 5270817-2 (Version None)
Quarter: 2007Q1

REPORT INFORMATION
  Report Type: 
  Country: None (occurrence: None)
  Receive Date: 20061214
  Receipt Date: 20051103
  Transmission Date: 20070707
  Serious: Yes (Hospitalization)
  Sender: FDA-Public Use
  Company Number: 2005127413

PATIENT
  Age: 79 Year
  Sex: Male
  Weight: 48.9885 kg

DRUGS (6)
  1. BEXTRA [Suspect]
     Indication: ARTHRITIS
     Dosage: 20 MG (10 MG, 2 IN 1 D); ORAL
     Route: 048
     Dates: start: 20040301, end: 20050201
  2. BEXTRA [Suspect]
     Indication: TENDONITIS
     Dosage: 20 MG (10 MG, 2 IN 1 D); ORAL
     Route: 048
     Dates: start: 20040301, end: 20050201
  3. ASPIRIN [Concomitant]
  4. COZAAR [Concomitant]
  5. LIPITOR [Concomitant]
  6. NEXIUM [Concomitant]

REACTIONS (6)
  - CARDIAC FAILURE CONGESTIVE [None]
  - CHEST DISCOMFORT [None]
  - CORONARY ARTERY DISEASE [None]
  - DYSPNOEA [None]
  - MYOCARDIAL INFARCTION [None]
  - PARAESTHESIA [None]
